FAERS Safety Report 13175883 (Version 3)
Quarter: 2017Q1

REPORT INFORMATION
  Report Type: Spontaneous
  Country: DE (occurrence: DE)
  Receive Date: 20170201
  Receipt Date: 20170210
  Transmission Date: 20170428
  Serious: Yes (Death, Hospitalization, Other)
  Sender: FDA-Public Use
  Company Number: DE-GILEAD-2017-0256048

PATIENT
  Age: 57 Year
  Sex: Female
  Weight: 62 kg

DRUGS (6)
  1. DACLATASVIR. [Suspect]
     Active Substance: DACLATASVIR
     Indication: HEPATITIS C
     Dosage: UNK
     Route: 065
     Dates: start: 20150623
  2. SOVALDI [Suspect]
     Active Substance: SOFOSBUVIR
     Indication: HEPATITIS C
     Dosage: 400 MG, QD
     Route: 048
     Dates: start: 20140206, end: 20140726
  3. SOVALDI [Suspect]
     Active Substance: SOFOSBUVIR
     Dosage: UNK
     Route: 065
     Dates: start: 20150623
  4. COPEGUS [Suspect]
     Active Substance: RIBAVIRIN
     Indication: HEPATITIS C
     Dosage: 400 MG, BID
     Route: 048
     Dates: start: 20140206, end: 20140726
  5. COPEGUS [Suspect]
     Active Substance: RIBAVIRIN
     Dosage: UNK
     Route: 065
     Dates: start: 20150623
  6. STILNOX [Concomitant]
     Active Substance: ZOLPIDEM TARTRATE
     Dosage: UNK
     Dates: start: 20140403

REACTIONS (24)
  - Treatment failure [Unknown]
  - Insomnia [Recovered/Resolved]
  - Hypertension [Unknown]
  - Brain oedema [Unknown]
  - Hepatorenal syndrome [Unknown]
  - Fatigue [Unknown]
  - Ascites [Unknown]
  - Peritonitis bacterial [Unknown]
  - Respiratory failure [Unknown]
  - Hepatic cirrhosis [Unknown]
  - Hepatopulmonary syndrome [Unknown]
  - Constipation [Unknown]
  - Chronic obstructive pulmonary disease [Unknown]
  - Somnolence [Unknown]
  - Renal failure [Unknown]
  - Abdominal distension [Unknown]
  - Death [Fatal]
  - Hepatic encephalopathy [Unknown]
  - Decreased appetite [Unknown]
  - Anuria [Unknown]
  - Seizure [Unknown]
  - Oliguria [Unknown]
  - Abdominal pain [Unknown]
  - Ileus [Unknown]

NARRATIVE: CASE EVENT DATE: 20140403
